FAERS Safety Report 6543628-5 (Version None)
Quarter: 2010Q1

REPORT INFORMATION
  Report Type: 
  Country: None (occurrence: None)
  Receive Date: 20100119
  Receipt Date: 20100119
  Transmission Date: 20100710
  Serious: Yes (Hospitalization)
  Sender: FDA-Public Use
  Company Number: None

PATIENT
  Age: 20 Year
  Sex: Female
  Weight: 65 kg

DRUGS (1)
  1. IBUPROFEN [Suspect]
     Indication: PAIN
     Dosage: ?? MG ONCE PO
     Route: 048
     Dates: start: 20100107, end: 20100107

REACTIONS (6)
  - DYSPNOEA [None]
  - EYE PRURITUS [None]
  - EYELID OEDEMA [None]
  - RASH MACULAR [None]
  - RESPIRATORY DEPRESSION [None]
  - URTICARIA [None]
